FAERS Safety Report 9120325 (Version 1)
Quarter: 2013Q1

REPORT INFORMATION
  Report Type: Spontaneous
  Country: US (occurrence: US)
  Receive Date: 20130226
  Receipt Date: 20130226
  Transmission Date: 20140127
  Serious: No
  Sender: FDA-Public Use
  Company Number: US-PFIZER INC-2013066431

PATIENT
  Sex: Female
  Weight: 72.56 kg

DRUGS (3)
  1. LYRICA [Suspect]
     Indication: NEURALGIA
     Dosage: 100 MG, 2X/DAY
     Route: 048
     Dates: start: 20130219
  2. HYDROCHLOROTHIAZIDE [Concomitant]
     Indication: HYPERTENSION
     Dosage: 12.5 MG DAILY
  3. LOSARTAN [Concomitant]
     Indication: HYPERTENSION
     Dosage: 80 MG DAILY

REACTIONS (3)
  - Dizziness [Unknown]
  - Somnolence [Unknown]
  - Coordination abnormal [Not Recovered/Not Resolved]
